FAERS Safety Report 13659595 (Version 1)
Quarter: 2017Q2

REPORT INFORMATION
  Report Type: Spontaneous
  Country: US (occurrence: US)
  Receive Date: 20170616
  Receipt Date: 20170616
  Transmission Date: 20170830
  Serious: Yes (Hospitalization)
  Sender: FDA-Public Use
  Company Number: None

PATIENT
  Age: 71 Year
  Sex: Female
  Weight: 107.3 kg

DRUGS (11)
  1. HUMALOG [Suspect]
     Active Substance: INSULIN LISPRO
     Indication: DIABETES MELLITUS
     Dosage: DOSE - SSI?DATES OF USE - CHRONIC
     Route: 058
  2. ALLOPURINOL. [Concomitant]
     Active Substance: ALLOPURINOL
  3. VITAMIN D [Concomitant]
     Active Substance: CHOLECALCIFEROL
  4. LANTUS [Suspect]
     Active Substance: INSULIN GLARGINE
     Indication: DIABETES MELLITUS
     Dosage: DOSE - 16 UNITS FREQUENCY - NIGHTLY?DATES OF USE - CHRONIC
     Route: 058
  5. LIPITOR [Concomitant]
     Active Substance: ATORVASTATIN CALCIUM
  6. VOLTAREN [Concomitant]
     Active Substance: DICLOFENAC SODIUM
  7. ECOTRIN [Concomitant]
     Active Substance: ASPIRIN
  8. BUMEX [Concomitant]
     Active Substance: BUMETANIDE
  9. ALBUTEROL. [Concomitant]
     Active Substance: ALBUTEROL
  10. PHOSLO [Concomitant]
     Active Substance: CALCIUM ACETATE
  11. CATAPRES [Concomitant]
     Active Substance: CLONIDINE HYDROCHLORIDE

REACTIONS (2)
  - Blood glucose increased [None]
  - Hypoglycaemia [None]

NARRATIVE: CASE EVENT DATE: 20170204
